FAERS Safety Report 13138889 (Version 6)
Quarter: 2017Q2

REPORT INFORMATION
  Report Type: Spontaneous
  Country: US (occurrence: US)
  Receive Date: 20170123
  Receipt Date: 20170516
  Transmission Date: 20170830
  Serious: No
  Sender: FDA-Public Use
  Company Number: US-PFIZER INC-2017026965

PATIENT
  Age: 74 Year
  Sex: Male
  Weight: 103 kg

DRUGS (4)
  1. PRILOSEC [Concomitant]
     Active Substance: OMEPRAZOLE MAGNESIUM
     Dosage: UNK
  2. PROSCAR [Concomitant]
     Active Substance: FINASTERIDE
     Dosage: UNK
  3. ALFUZOSIN [Concomitant]
     Active Substance: ALFUZOSIN
     Dosage: UNK
  4. SUTENT [Suspect]
     Active Substance: SUNITINIB MALATE
     Indication: GASTROINTESTINAL STROMAL TUMOUR
     Dosage: 50 MG, CYCLIC (28 DAYS ON/14 DAYS OFF)
     Dates: start: 20161228

REACTIONS (8)
  - Hypertension [Unknown]
  - Dyspnoea [Unknown]
  - Neoplasm progression [Unknown]
  - Pain in extremity [Unknown]
  - Intervertebral disc disorder [Unknown]
  - Muscle spasms [Unknown]
  - Arthritis [Unknown]
  - Fatigue [Unknown]
